FAERS Safety Report 9508722 (Version 1)
Quarter: 2013Q1

REPORT INFORMATION
  Report Type: Spontaneous
  Country: US (occurrence: None)
  Receive Date: 20130305
  Receipt Date: 20130305
  Transmission Date: 20140127
  Serious: Yes (Other)
  Sender: FDA-Public Use
  Company Number: 163-21880-11050713

PATIENT
  Age: 82 Year
  Sex: Female
  Weight: 48.08 kg

DRUGS (14)
  1. REVLIMID [Suspect]
     Indication: PLASMA CELL MYELOMA
     Dosage: 2.5 MG, 1 IN 2 D, PO
     Route: 048
     Dates: start: 200811, end: 20110419
  2. ATIVAN (LORAZEPAM) [Concomitant]
  3. COMPAZINE (PROCHLORPERAZINE EDISYLATE) [Concomitant]
  4. COUMADIN (WARFARIN SODIUM) [Concomitant]
  5. FERRO-SEQUELS [Concomitant]
  6. ZOLEDRONIC ACID [Concomitant]
  7. MELOXICAM [Concomitant]
  8. MULTIVITAMINS [Concomitant]
  9. NEXIUM [Concomitant]
  10. SYNTHROID (LEVOTHYROXINE SODIUM) [Concomitant]
  11. TUMS ULTRA (CHEWABLE TABLET) [Concomitant]
  12. VITAMIN D (ERGOCALCIFEROL) [Concomitant]
  13. VELCADE (BORTEZOMIB) [Concomitant]
  14. FORTEO (TERIPARATIDE) [Concomitant]

REACTIONS (4)
  - Femur fracture [None]
  - Fall [None]
  - Diarrhoea [None]
  - Constipation [None]
